FAERS Safety Report 15884983 (Version 6)
Quarter: 2020Q3

REPORT INFORMATION
  Report Type: Spontaneous
  Country: FR (occurrence: FR)
  Receive Date: 20190129
  Receipt Date: 20200730
  Transmission Date: 20201102
  Serious: Yes (Hospitalization, Disabling, Other)
  Sender: FDA-Public Use
  Company Number: FR-PFIZER INC-2019038970

PATIENT
  Age: 81 Year
  Sex: Female
  Weight: 48 kg

DRUGS (48)
  1. CORDARONE [Suspect]
     Active Substance: AMIODARONE HYDROCHLORIDE
     Dosage: 1 DF, UNK (1 UNIT ON MORNING EXCEPT SUNDAY)
     Route: 065
     Dates: start: 201707, end: 20170713
  2. XARELTO [Concomitant]
     Active Substance: RIVAROXABAN
     Dosage: 1 DF, QD,,1 UNIT ON EVENING
     Route: 065
     Dates: start: 20170515, end: 201707
  3. LASILIX [FUROSEMIDE SODIUM] [Concomitant]
     Active Substance: FUROSEMIDE SODIUM
     Dosage: 1 DF, QD, 1 UNIT ON MORNING
     Route: 065
     Dates: start: 2018
  4. ATENOLOL. [Concomitant]
     Active Substance: ATENOLOL
     Dosage: 100 MG, UNK
     Dates: start: 20170803
  5. LEVOTHYROX [Concomitant]
     Active Substance: LEVOTHYROXINE
     Dosage: 50 UG, DAILY
     Dates: start: 2017
  6. FORLAX [Concomitant]
     Active Substance: POLYETHYLENE GLYCOL 4000
     Dosage: 2 DF, DAILY
     Dates: start: 2017
  7. MODOPAR [Concomitant]
     Active Substance: BENSERAZIDE HYDROCHLORIDE\LEVODOPA
     Dosage: 1 DF, 3X/DAY
     Dates: start: 2017
  8. CORDARONE [Suspect]
     Active Substance: AMIODARONE HYDROCHLORIDE
     Dosage: UNK
     Route: 065
     Dates: start: 20170810, end: 201802
  9. LASILIX [FUROSEMIDE SODIUM] [Concomitant]
     Active Substance: FUROSEMIDE SODIUM
     Dosage: 1 DF, QD, 1 UNIT ON MORNING
     Route: 065
     Dates: start: 20170515, end: 201707
  10. LASILIX [FUROSEMIDE SODIUM] [Concomitant]
     Active Substance: FUROSEMIDE SODIUM
     Dosage: 0.25 DF, QD,1 / 4UNIT ON MORNING
     Route: 065
     Dates: start: 201707
  11. DOLIPRANE [Concomitant]
     Active Substance: ACETAMINOPHEN
     Dosage: 2 DF, DAILY
     Dates: start: 2017
  12. CORDARONE [Suspect]
     Active Substance: AMIODARONE HYDROCHLORIDE
     Dosage: 1 DF, QD, 1 UNIT ON MORNING
     Route: 065
  13. AMIODARONE HCL [Suspect]
     Active Substance: AMIODARONE HYDROCHLORIDE
     Dosage: 1 UNIT ON MORNING EXCEPT SUNDAY AND SATURDAY
     Route: 065
     Dates: start: 20170515, end: 20180220
  14. ATENOLOL. [Concomitant]
     Active Substance: ATENOLOL
     Dosage: 0.5 DF, 2X/DAY
  15. MOVICOL [Concomitant]
     Active Substance: POLYETHYLENE GLYCOL 3350\POTASSIUM CHLORIDE\SODIUM BICARBONATE\SODIUM CHLORIDE
     Dosage: 1 DF, BID,1 UNIT TWICE DAILY
     Route: 065
     Dates: start: 201706
  16. CYMBALTA [Concomitant]
     Active Substance: DULOXETINE HYDROCHLORIDE
     Dosage: UNK
     Route: 065
  17. ATENOLOL. [Concomitant]
     Active Substance: ATENOLOL
     Dosage: 1 / 2UNIT DAILY
     Route: 065
     Dates: start: 20170803
  18. DIFFU K [Concomitant]
     Active Substance: POTASSIUM CHLORIDE
     Dosage: 6 DF, DAILY
     Dates: start: 2017
  19. STILNOX [Concomitant]
     Active Substance: ZOLPIDEM TARTRATE
     Dosage: 10 MG, QD 1 UNIT ON EVENING
     Route: 065
  20. AMIODARONE HCL [Suspect]
     Active Substance: AMIODARONE HYDROCHLORIDE
     Indication: ATRIAL FIBRILLATION
     Dosage: UNK
     Route: 065
     Dates: start: 201708
  21. CYMBALTA [Concomitant]
     Active Substance: DULOXETINE HYDROCHLORIDE
     Dosage: 1 DF, DAILY
     Dates: start: 2017
  22. ATENOLOL. [Concomitant]
     Active Substance: ATENOLOL
     Dosage: 0.5 DF, QD (1 / 2UNIT DAILY ON MORNING)
     Route: 065
     Dates: start: 2017
  23. UVEDOSE [Concomitant]
     Active Substance: CHOLECALCIFEROL
     Dosage: UNK
     Route: 065
     Dates: start: 2018
  24. PREDNISONE. [Concomitant]
     Active Substance: PREDNISONE
     Dosage: 40 MG, QD
     Dates: start: 20180123
  25. CORDARONE [Suspect]
     Active Substance: AMIODARONE HYDROCHLORIDE
     Dosage: 2 DF, QD, 2 UNITS ON MORNING
     Route: 065
     Dates: start: 20170515
  26. CYMBALTA [Concomitant]
     Active Substance: DULOXETINE HYDROCHLORIDE
     Dosage: 60 MG, DAILY
     Route: 065
  27. ATENOLOL. [Concomitant]
     Active Substance: ATENOLOL
     Dosage: UNK
     Route: 065
  28. LEVOTHYROX [Concomitant]
     Active Substance: LEVOTHYROXINE
     Dosage: 1 DF,QD, 1 UNIT DAILY ON MORNING
     Route: 065
     Dates: start: 2003
  29. DIFFU K [Concomitant]
     Active Substance: POTASSIUM CHLORIDE
     Dosage: 1 DF, TID, 1 UNIT 3 TIMESDAILY
     Route: 065
     Dates: start: 201707, end: 201707
  30. DIFFU K [Concomitant]
     Active Substance: POTASSIUM CHLORIDE
     Dosage: 1 DF, BID, 1 UNIT TWICE DAILY
     Route: 065
     Dates: start: 201707
  31. ZOLPIDEM [Concomitant]
     Active Substance: ZOLPIDEM TARTRATE
     Dosage: UNK
     Route: 065
     Dates: start: 2018
  32. FORLAX [Concomitant]
     Active Substance: POLYETHYLENE GLYCOL 4000
     Dosage: 1 DF, QD, 1UNIT DAILY
     Route: 065
     Dates: start: 20170803
  33. LANSOPRAZOLE. [Concomitant]
     Active Substance: LANSOPRAZOLE
     Dosage: 1 DF, DAILY
     Dates: start: 2017
  34. LANSOPRAZOLE. [Concomitant]
     Active Substance: LANSOPRAZOLE
     Dosage: 1 DF, QD, 1UNIT DAILY
     Route: 065
     Dates: start: 2018
  35. CORDARONE [Suspect]
     Active Substance: AMIODARONE HYDROCHLORIDE
     Dosage: UNK
     Route: 065
     Dates: start: 201802
  36. XARELTO [Concomitant]
     Active Substance: RIVAROXABAN
     Dosage: 1 DF,QD, 1 UNIT ON EVENING
     Route: 065
     Dates: start: 201707
  37. ATENOLOL. [Concomitant]
     Active Substance: ATENOLOL
     Dosage: 1 DF, DAILY
     Dates: start: 2017
  38. DIFFU K [Concomitant]
     Active Substance: POTASSIUM CHLORIDE
     Dosage: 3 DF, QD
     Route: 065
  39. DIFFU K [Concomitant]
     Active Substance: POTASSIUM CHLORIDE
     Dosage: UNK
  40. DEBRIDAT [TRIMEBUTINE] [Concomitant]
     Active Substance: TRIMEBUTINE
     Dosage: UNK
     Route: 065
  41. ZOLPIDEM [Concomitant]
     Active Substance: ZOLPIDEM TARTRATE
     Dosage: 1 DF, DAILY
     Dates: start: 2017
  42. DULOXETINE. [Concomitant]
     Active Substance: DULOXETINE
     Dosage: 2 DF, QD, 2 UNITS DAILY
     Route: 065
     Dates: start: 20170803
  43. MODOPAR [Concomitant]
     Active Substance: BENSERAZIDE HYDROCHLORIDE\LEVODOPA
     Dosage: 3 DF,QD, 3 UNITS DAILY
     Route: 065
     Dates: start: 2018
  44. ATENOLOL. [Concomitant]
     Active Substance: ATENOLOL
     Dosage: 50 MG, DAILY (1 UNIT)
     Route: 065
     Dates: start: 201706
  45. DIFFU K [Concomitant]
     Active Substance: POTASSIUM CHLORIDE
     Dosage: 2 DF, TID, 2 UNITS 3 TIMES DAILY
     Route: 065
     Dates: start: 20170803
  46. DIFFU K [Concomitant]
     Active Substance: POTASSIUM CHLORIDE
     Dosage: 2 UNITS ON MORNING AND EVENING
  47. ALDACTONE [Concomitant]
     Active Substance: SPIRONOLACTONE
     Dosage: UNK UNK, QD,1/2 UNITS DAILY
     Route: 065
     Dates: start: 20170803
  48. FOLIC ACID. [Concomitant]
     Active Substance: FOLIC ACID
     Dosage: 2 DF, DAILY
     Dates: start: 2017

REACTIONS (27)
  - Pneumonia [Unknown]
  - Condition aggravated [Unknown]
  - Optic neuritis [Not Recovered/Not Resolved]
  - Arterial disorder [Unknown]
  - Extrapyramidal disorder [Unknown]
  - Papilloedema [Unknown]
  - Cerebellar syndrome [Unknown]
  - Neuropathy peripheral [Unknown]
  - Ophthalmic vein thrombosis [Unknown]
  - Atrial fibrillation [Unknown]
  - Hypoxia [Unknown]
  - Hypercapnia [Unknown]
  - Tremor [Unknown]
  - Optic neuropathy [Unknown]
  - Eye haemorrhage [Unknown]
  - Optic atrophy [Unknown]
  - Depression [Unknown]
  - Anaemia [Unknown]
  - Papilloedema [Not Recovered/Not Resolved]
  - Visual acuity reduced [Recovering/Resolving]
  - Diplopia [Unknown]
  - Retinal vein thrombosis [Unknown]
  - Parkinsonism [Unknown]
  - Pleural effusion [Unknown]
  - Cardiac failure [Unknown]
  - Dyspnoea [Unknown]
  - Aortic valve calcification [Unknown]

NARRATIVE: CASE EVENT DATE: 201705
